FAERS Safety Report 4291175-6 (Version None)
Quarter: 2004Q1

REPORT INFORMATION
  Report Type: 
  Country: None (occurrence: None)
  Receive Date: 20040209
  Receipt Date: 20040126
  Transmission Date: 20041129
  Serious: Yes (Other)
  Sender: FDA-Public Use
  Company Number: 2003124106

PATIENT
  Age: 68 Year
  Sex: Male
  Weight: 90.7194 kg

DRUGS (14)
  1. LIPITOR [Suspect]
     Indication: BLOOD CHOLESTEROL
     Dosage: 10 MG (DAILY), ORAL
     Route: 048
     Dates: start: 20031024, end: 20031222
  2. INSULIN [Concomitant]
  3. ROSIGLITAZONE MALEATE (ROSIGLITAZONE MALEATE) [Concomitant]
  4. COSOPT [Concomitant]
  5. BRIMONIDINE TARTRATE (BRIMONIDINE TARTRATE) [Concomitant]
  6. PREDNISOLONE ACETATE [Concomitant]
  7. .ONE-A-DAY (ERGOCALCIFEROL, ASCORBIC ACID, PYRIDOXINE HYDROCHLORIDE, C [Concomitant]
  8. SERENOA REPENS (SERENOA REPENS) [Concomitant]
  9. CHONFROITIN SULFATE (CHONDROITIN SULFATE) [Concomitant]
  10. GLUCOSAMINE (GLUCOSAMINE) [Concomitant]
  11. ACETYLSALICYLIC ACID SRT [Concomitant]
  12. FEXOFENADINE HYDROCHLORIDE [Concomitant]
  13. AMITRIPTYLINE HCL [Concomitant]
  14. QUININE (QUININE) [Concomitant]

REACTIONS (1)
  - INTRAOCULAR PRESSURE INCREASED [None]
